FAERS Safety Report 8496698 (Version 2)
Quarter: 2013Q1

REPORT INFORMATION
  Report Type: Spontaneous
  Country: CA (occurrence: CA)
  Receive Date: 20120405
  Receipt Date: 20130321
  Transmission Date: 20140127
  Serious: Yes (Hospitalization, Other)
  Sender: FDA-Public Use
  Company Number: CA-ROCHE-1054974

PATIENT
  Sex: Female

DRUGS (7)
  1. XOLAIR [Suspect]
     Indication: ASTHMA
     Route: 058
     Dates: start: 20110920, end: 20121101
  2. SINGULAIR [Concomitant]
  3. PREDNISONE [Concomitant]
  4. FOSAMAX [Concomitant]
  5. SPIRIVA [Concomitant]
  6. VITAMIN D2 [Concomitant]
  7. ADVAIR [Concomitant]

REACTIONS (4)
  - Pneumonia [Unknown]
  - Influenza [Unknown]
  - Drug ineffective [Unknown]
  - Allergy to chemicals [Unknown]
